FAERS Safety Report 11099083 (Version 1)
Quarter: 2015Q2

REPORT INFORMATION
  Report Type: Spontaneous
  Country: US (occurrence: None)
  Receive Date: 20150507
  Receipt Date: 20150507
  Transmission Date: 20150821
  Serious: No
  Sender: FDA-Public Use
  Company Number: None

PATIENT
  Age: 64 Year
  Sex: Male

DRUGS (1)
  1. RIBAVIRIN 200MG [Suspect]
     Active Substance: RIBAVIRIN
     Indication: HEPATITIS C
     Dosage: 3 TABS BID ORAL
     Route: 048

REACTIONS (6)
  - Dry skin [None]
  - Suicidal ideation [None]
  - Insomnia [None]
  - Skin fissures [None]
  - Depression [None]
  - Influenza like illness [None]

NARRATIVE: CASE EVENT DATE: 20150301
